FAERS Safety Report 14250007 (Version 1)
Quarter: 2017Q4

REPORT INFORMATION
  Report Type: Spontaneous
  Country: US (occurrence: None)
  Receive Date: 20171205
  Receipt Date: 20171205
  Transmission Date: 20180321
  Serious: Yes (Hospitalization)
  Sender: FDA-Public Use
  Company Number: None

PATIENT
  Age: 35 Year
  Sex: Female

DRUGS (5)
  1. SYRINGE [Concomitant]
     Active Substance: DEVICE
  2. PARI-ADULT MASK [Concomitant]
  3. GENTAMYCIN [Concomitant]
     Active Substance: GENTAMICIN
  4. CALCIUM [Concomitant]
     Active Substance: CALCIUM
  5. PULMOZYME [Suspect]
     Active Substance: DORNASE ALFA
     Indication: CYSTIC FIBROSIS
     Dosage: 2.5MG/2.5ML ONCE DAILY ORAL NEBULIZED
     Dates: start: 20151229

REACTIONS (3)
  - Pneumonia [None]
  - Cystic fibrosis [None]
  - Condition aggravated [None]

NARRATIVE: CASE EVENT DATE: 20171129
